FAERS Safety Report 18898080 (Version 2)
Quarter: 2023Q1

REPORT INFORMATION
  Report Type: Report from Study
  Country: CA (occurrence: CA)
  Receive Date: 20210216
  Receipt Date: 20230130
  Transmission Date: 20230417
  Serious: Yes (Other)
  Sender: FDA-Public Use
  Company Number: CA-NOVARTISPH-NVSC2021CA034555

PATIENT
  Age: 44 Year
  Sex: Male

DRUGS (2)
  1. GILENYA [Suspect]
     Active Substance: FINGOLIMOD HYDROCHLORIDE
     Indication: Relapsing-remitting multiple sclerosis
     Dosage: UNK
     Route: 048
     Dates: start: 20170321
  2. CHLORTHALIDONE [Concomitant]
     Active Substance: CHLORTHALIDONE
     Indication: Hypertension
     Dosage: UNK, INCONSISTENTLY
     Route: 065

REACTIONS (10)
  - Expanded disability status scale score increased [Unknown]
  - Muscle spasticity [Unknown]
  - Saccadic eye movement [Unknown]
  - Musculoskeletal discomfort [Unknown]
  - Joint injury [Unknown]
  - Hypoaesthesia [Unknown]
  - Gait disturbance [Unknown]
  - Sensory disturbance [Unknown]
  - Muscular weakness [Unknown]
  - Urinary incontinence [Unknown]

NARRATIVE: CASE EVENT DATE: 20200817
